FAERS Safety Report 9179211 (Version 4)
Quarter: 2013Q4

REPORT INFORMATION
  Report Type: Spontaneous
  Country: JP (occurrence: JP)
  Receive Date: 20130321
  Receipt Date: 20131231
  Transmission Date: 20140711
  Serious: Yes (Hospitalization)
  Sender: FDA-Public Use
  Company Number: JP-GLAXOSMITHKLINE-B0862509A

PATIENT
  Sex: Male

DRUGS (7)
  1. SERETIDE [Suspect]
     Indication: ASTHMA
     Dosage: 500MCG TWICE PER DAY
     Route: 055
     Dates: start: 20111217, end: 20121220
  2. THEODUR [Concomitant]
     Route: 048
  3. H2 RECEPTOR ANTAGONIST [Concomitant]
     Route: 065
  4. BLOPRESS [Concomitant]
     Indication: HYPERTENSION
     Dosage: 8MG PER DAY
     Route: 048
     Dates: start: 20091203
  5. FUROSEMIDE [Concomitant]
     Indication: OEDEMA
     Dosage: 20MG PER DAY
     Route: 048
     Dates: start: 200701, end: 20120626
  6. FUROSEMIDE [Concomitant]
     Indication: OEDEMA
     Dosage: 10MG PER DAY
     Route: 048
     Dates: start: 20120627
  7. THEOLONG [Concomitant]
     Indication: ASTHMA
     Dosage: 100MG TWICE PER DAY
     Route: 048
     Dates: start: 20111217

REACTIONS (11)
  - Adrenal insufficiency [Unknown]
  - Pneumonia bacterial [Recovering/Resolving]
  - Pneumonia [Unknown]
  - Adrenal suppression [Unknown]
  - Renal salt-wasting syndrome [Unknown]
  - Inappropriate antidiuretic hormone secretion [Unknown]
  - Adrenal insufficiency [Unknown]
  - Weight decreased [Unknown]
  - Normochromic normocytic anaemia [Unknown]
  - Hyponatraemia [Not Recovered/Not Resolved]
  - Constipation [Unknown]
